FAERS Safety Report 5937170-X (Version None)
Quarter: 2008Q4

REPORT INFORMATION
  Report Type: 
  Country: None (occurrence: None)
  Receive Date: 20081031
  Receipt Date: 20081021
  Transmission Date: 20090506
  Serious: Yes (Other)
  Sender: FDA-Public Use
  Company Number: US-JNJFOC-20081005559

PATIENT
  Sex: Female
  Weight: 58.97 kg

DRUGS (6)
  1. REMICADE [Suspect]
     Indication: CROHN'S DISEASE
     Dosage: FOR 3 YEARS
     Route: 042
  2. ZELNORM [Concomitant]
  3. PENTASA [Concomitant]
     Dosage: FOR 7 YEARS
  4. PREVACID [Concomitant]
  5. METFORMIN HCL [Concomitant]
  6. LEXAPRO [Concomitant]

REACTIONS (3)
  - EXPLORATORY OPERATION [None]
  - HEPATITIS B [None]
  - INFECTION [None]
